FAERS Safety Report 4757028-1 (Version None)
Quarter: 2005Q3

REPORT INFORMATION
  Report Type: 
  Country: None (occurrence: None)
  Receive Date: 20050829
  Receipt Date: 20050829
  Transmission Date: 20060218
  Serious: Yes (Hospitalization)
  Sender: FDA-Public Use
  Company Number: None

PATIENT
  Age: 80 Year
  Sex: Female
  Weight: 62 kg

DRUGS (9)
  1. DIGOXIN [Suspect]
     Indication: CARDIAC FAILURE CONGESTIVE
     Dosage: 0.125 MG Q M,W,F,SA ORAL
     Route: 048
     Dates: start: 20040101, end: 20050207
  2. ATENOLOL [Concomitant]
  3. CLONIDINE [Concomitant]
  4. FUROSEMIDE [Concomitant]
  5. SPIRONOLACTONE [Concomitant]
  6. AMIODARONE [Concomitant]
  7. NITROGLYCERIN [Concomitant]
  8. ZOCOR [Concomitant]
  9. WARFARIN [Concomitant]

REACTIONS (8)
  - BLOOD POTASSIUM INCREASED [None]
  - CARDIOACTIVE DRUG LEVEL INCREASED [None]
  - DECREASED APPETITE [None]
  - DIPLOPIA [None]
  - DYSURIA [None]
  - FATIGUE [None]
  - NAUSEA [None]
  - VISUAL DISTURBANCE [None]
